FAERS Safety Report 8288171-0 (Version None)
Quarter: 2012Q2

REPORT INFORMATION
  Report Type: 
  Country: None (occurrence: None)
  Receive Date: 20120416
  Receipt Date: 20120410
  Transmission Date: 20120825
  Serious: Yes (Hospitalization)
  Sender: FDA-Public Use
  Company Number: US-BAYER-2012-036018

PATIENT
  Age: 71 Year

DRUGS (14)
  1. TRASYLOL [Suspect]
     Indication: MITRAL VALVE REPAIR
  2. TRASYLOL [Suspect]
     Indication: CORONARY ARTERY BYPASS
     Dosage: UNK
     Dates: start: 20020607
  3. ISOFLURANE [Concomitant]
     Dosage: UNK,INHALED
     Dates: start: 20020607
  4. CALCIUM CARBONATE [Concomitant]
  5. VERSED [Concomitant]
     Dosage: 2 MG, UNK
     Route: 042
     Dates: start: 20020607
  6. RED BLOOD CELLS [Concomitant]
     Dosage: 4 U, UNK
  7. PLATELETS [Concomitant]
  8. ASPIRIN [Concomitant]
  9. VIOXX [Concomitant]
  10. DOPAMINE HCL [Concomitant]
     Dosage: UNK
     Route: 042
     Dates: start: 20020607
  11. PHENYLEPHRINE HCL [Concomitant]
     Dosage: UNK
     Route: 042
     Dates: start: 20020607
  12. FENTANYL [Concomitant]
     Dosage: 150 ?G, UNK
     Route: 042
     Dates: start: 20020607
  13. PROPOFOL [Concomitant]
     Dosage: 50 ML, UNK
     Route: 042
     Dates: start: 20020607
  14. VERAPAMIL [Concomitant]

REACTIONS (1)
  - RENAL FAILURE ACUTE [None]
